FAERS Safety Report 15321773 (Version 1)
Quarter: 2018Q3

REPORT INFORMATION
  Report Type: Spontaneous
  Country: US (occurrence: US)
  Receive Date: 20180827
  Receipt Date: 20180827
  Transmission Date: 20181010
  Serious: No
  Sender: FDA-Public Use
  Company Number: US-MYLANLABS-2018M1063118

PATIENT
  Sex: Male
  Weight: 81 kg

DRUGS (2)
  1. PROLASTIN?C [Suspect]
     Active Substance: .ALPHA.1-PROTEINASE INHIBITOR HUMAN
     Indication: LUNG DISORDER
     Dosage: UNK
     Route: 048
  2. PERFOROMIST [Suspect]
     Active Substance: FORMOTEROL FUMARATE DIHYDRATE
     Indication: LUNG DISORDER
     Dosage: 20 UNK, UNK
     Route: 048

REACTIONS (6)
  - Drug ineffective [Recovered/Resolved]
  - Incorrect product formulation administered [Recovered/Resolved]
  - Off label use [Recovered/Resolved]
  - Agitation [Recovering/Resolving]
  - Toxicity to various agents [Recovering/Resolving]
  - Condition aggravated [Recovering/Resolving]
